FAERS Safety Report 11703500 (Version 2)
Quarter: 2019Q1

REPORT INFORMATION
  Report Type: Spontaneous
  Country: FR (occurrence: FR)
  Receive Date: 20151105
  Receipt Date: 20190325
  Transmission Date: 20190417
  Serious: Yes (Hospitalization, Other)
  Sender: FDA-Public Use
  Company Number: FR-GILEAD-2015-0179200

PATIENT
  Age: 33 Year
  Sex: Female
  Weight: 41 kg

DRUGS (5)
  1. LUTENYL [Concomitant]
     Active Substance: NOMEGESTROL ACETATE
  2. REYATAZ [Concomitant]
     Active Substance: ATAZANAVIR SULFATE
  3. INTELENCE [Concomitant]
     Active Substance: ETRAVIRINE
  4. HARVONI [Suspect]
     Active Substance: LEDIPASVIR\SOFOSBUVIR
     Indication: HEPATITIS C
     Dosage: UNK
     Route: 048
     Dates: start: 20150901, end: 20151006
  5. ISENTRESS [Concomitant]
     Active Substance: RALTEGRAVIR POTASSIUM

REACTIONS (5)
  - Sinus node dysfunction [Recovered/Resolved]
  - Arrhythmia [Unknown]
  - Malaise [Recovered/Resolved]
  - Sinoatrial block [Recovered/Resolved]
  - Cardiac disorder [Unknown]

NARRATIVE: CASE EVENT DATE: 201509
